FAERS Safety Report 21021453 (Version 1)
Quarter: 2022Q2

REPORT INFORMATION
  Report Type: Report from Study
  Country: US (occurrence: US)
  Receive Date: 20220629
  Receipt Date: 20220629
  Transmission Date: 20220721
  Serious: Yes (Other)
  Sender: FDA-Public Use
  Company Number: US-BIOVITRUM-2022US04696

PATIENT
  Sex: Female

DRUGS (1)
  1. KINERET [Suspect]
     Active Substance: ANAKINRA
     Indication: Product used for unknown indication
     Route: 058

REACTIONS (6)
  - Neoplasm malignant [Unknown]
  - Adverse reaction [Unknown]
  - Neck pain [Unknown]
  - Mass [Unknown]
  - White blood cell count decreased [Unknown]
  - Injection site pain [Unknown]
